FAERS Safety Report 22040455 (Version 1)
Quarter: 2023Q1

REPORT INFORMATION
  Report Type: Spontaneous
  Country: IN (occurrence: None)
  Receive Date: 20230225
  Receipt Date: 20230225
  Transmission Date: 20230418
  Serious: Yes (unspecified)
  Sender: FDA-Public Use
  Company Number: None

PATIENT
  Age: 61 Year
  Sex: Male
  Weight: 79 kg

DRUGS (6)
  1. DAPAGLIFLOZIN\METFORMIN HYDROCHLORIDE\SAXAGLIPTIN HYDROCHLORIDE [Suspect]
     Active Substance: DAPAGLIFLOZIN\METFORMIN HYDROCHLORIDE\SAXAGLIPTIN HYDROCHLORIDE
     Indication: Diabetes mellitus
     Dosage: OTHER QUANTITY : 1 TABLET(S);?FREQUENCY : DAILY;?
     Route: 048
     Dates: start: 20220210, end: 20230222
  2. INSTAMET 50/500 [Concomitant]
  3. MELOSARTAN 50 [Concomitant]
  4. BENTOVA 4 MG [Concomitant]
  5. ROSAVEL F [Concomitant]
  6. BECOSULES Z [Concomitant]

REACTIONS (2)
  - Urinary tract infection [None]
  - Penis disorder [None]

NARRATIVE: CASE EVENT DATE: 20230218
